FAERS Safety Report 7713784-1 (Version None)
Quarter: 2011Q3

REPORT INFORMATION
  Report Type: 
  Country: None (occurrence: None)
  Receive Date: 20110826
  Receipt Date: 20110819
  Transmission Date: 20111222
  Serious: No
  Sender: FDA-Public Use
  Company Number: US-PFIZER INC-2011193667

PATIENT
  Sex: Female

DRUGS (2)
  1. GEODON [Suspect]
     Dosage: 60 UNK, 2X/DAY
  2. GEODON [Suspect]
     Dosage: 60 MG, DAILY

REACTIONS (1)
  - MENSTRUATION IRREGULAR [None]
